FAERS Safety Report 6580017-1 (Version None)
Quarter: 2010Q1

REPORT INFORMATION
  Report Type: 
  Country: None (occurrence: None)
  Receive Date: 20100212
  Receipt Date: 20100208
  Transmission Date: 20100710
  Serious: Yes (Hospitalization)
  Sender: FDA-Public Use
  Company Number: FR-MERCK-1002FRA00028

PATIENT
  Age: 31 Year
  Sex: Female

DRUGS (4)
  1. TIMOPTIC [Suspect]
     Route: 047
     Dates: start: 20090415
  2. AMMONIUM GLYCYRRHIZATE AND ASCORBIC ACID AND CHLORHEXIDINE GLUCONATE A [Suspect]
     Route: 048
     Dates: start: 20090502, end: 20090502
  3. ACONITE AND CODEINE AND ELECAMPANE AND SODIUM FORMATE [Suspect]
     Route: 048
     Dates: start: 20090502, end: 20090502
  4. BIMATOPROST [Suspect]
     Route: 047
     Dates: start: 20090415

REACTIONS (4)
  - ABDOMINAL PAIN [None]
  - DYSPNOEA [None]
  - HYPOTENSION [None]
  - MALAISE [None]
